FAERS Safety Report 23526484 (Version 9)
Quarter: 2024Q4

REPORT INFORMATION
  Report Type: Report from Study
  Country: KR (occurrence: KR)
  Receive Date: 20240215
  Receipt Date: 20241212
  Transmission Date: 20250115
  Serious: Yes (Life-Threatening, Hospitalization, Other)
  Sender: MYLAN
  Company Number: KR-MYLANLABS-2024M1014223

PATIENT
  Age: 49 Year
  Sex: Male
  Weight: 86 kg

DRUGS (10)
  1. LIPITOR [Suspect]
     Active Substance: ATORVASTATIN CALCIUM
     Indication: Product used for unknown indication
     Dosage: 40 MILLIGRAM, QD
     Route: 065
     Dates: start: 20231226, end: 20240213
  2. LIPITOR [Suspect]
     Active Substance: ATORVASTATIN CALCIUM
     Dosage: 80 MILLIGRAM, QD
     Route: 065
     Dates: start: 20240214, end: 20240331
  3. LIPINON [Concomitant]
     Indication: Dyslipidaemia
     Dosage: 1 DOSAGE FORM
     Route: 048
     Dates: start: 20231222, end: 20231225
  4. ASPIRIN [Concomitant]
     Active Substance: ASPIRIN
     Indication: Acute myocardial infarction
     Dosage: 1 DOSAGE FORM
     Route: 048
     Dates: start: 20231223, end: 20231223
  5. CARVEDILOL [Concomitant]
     Active Substance: CARVEDILOL
     Indication: Acute myocardial infarction
     Dosage: 1 DOSAGE FORM, BID
     Route: 048
     Dates: start: 20231222, end: 20240207
  6. Capril [Concomitant]
     Indication: Acute myocardial infarction
     Dosage: 0.5 DOSAGE FORM, TID
     Route: 048
     Dates: start: 20231222, end: 20240207
  7. ASPIRIN [Concomitant]
     Active Substance: ASPIRIN
     Indication: Acute myocardial infarction
     Dosage: 1 DOSAGE FORM, QD
     Route: 048
     Dates: start: 20231222, end: 20240401
  8. BRILINTA [Concomitant]
     Active Substance: TICAGRELOR
     Indication: Acute myocardial infarction
     Dosage: 1 DOSAGE FORM, BID
     Route: 048
     Dates: start: 20231222, end: 20240207
  9. PANTOPRAZOLE SODIUM [Concomitant]
     Active Substance: PANTOPRAZOLE SODIUM
     Indication: Prophylaxis
     Dosage: 1 DOSAGE FORM, QD
     Route: 048
     Dates: start: 20231223
  10. RAMIPRIL [Concomitant]
     Active Substance: RAMIPRIL
     Indication: Acute myocardial infarction
     Dosage: 1 DOSAGE FORM, QD
     Route: 048
     Dates: start: 20240214

REACTIONS (3)
  - Anaemia [Recovering/Resolving]
  - Haematochezia [Recovered/Resolved]
  - Adenocarcinoma [Recovering/Resolving]

NARRATIVE: CASE EVENT DATE: 20240207
